FAERS Safety Report 8872458 (Version 1)
Quarter: 2012Q4

REPORT INFORMATION
  Report Type: 
  Country: US (occurrence: US)
  Receive Date: 20121030
  Receipt Date: 20121030
  Transmission Date: 20130627
  Serious: Yes (Hospitalization)
  Sender: FDA-Public Use
  Company Number: US-DX529-2012DX000230

PATIENT
  Sex: Female
  Weight: 81.65 kg

DRUGS (12)
  1. KALBITOR [Suspect]
     Indication: HEREDITARY ANGIOEDEMA
     Route: 058
     Dates: start: 2012
  2. KALBITOR [Suspect]
     Indication: HEREDITARY ANGIOEDEMA
     Route: 058
     Dates: start: 201209, end: 201209
  3. SOLUMEDROL(METHYLPREDNISOLONE SODIUM SUCCINATE) INFUSION [Concomitant]
     Indication: PRODUCT USED FOR UNKNOWN INDICATION
  4. EPINEPHRINE [Concomitant]
     Indication: PRODUCT USED FOR UNKNOWN INDICATION
  5. ALPRAZOLAM [Concomitant]
     Indication: ANXIETY
  6. HYDROXYZINE [Concomitant]
     Indication: ANXIETY
     Route: 048
  7. CLONAZEPAM [Concomitant]
     Indication: ANXIETY
  8. CITALOPRAM [Concomitant]
     Indication: ANXIETY
  9. TRAZODONE [Concomitant]
     Indication: INSOMNIA
  10. VITAMIN D [Concomitant]
     Indication: PRODUCT USED FOR UNKNOWN INDICATION
  11. FEXOFENADINE [Concomitant]
     Indication: SWELLING
  12. ADVAIR [Concomitant]
     Indication: ASTHMA
     Dosage: Dose unit:2 Inhal.
     Route: 055

REACTIONS (2)
  - Pneumonia [Recovered/Resolved]
  - Hereditary angioedema [Unknown]
